FAERS Safety Report 10173047 (Version 2)
Quarter: 2014Q2

REPORT INFORMATION
  Report Type: Spontaneous
  Country: US (occurrence: None)
  Receive Date: 20140416
  Receipt Date: 20140604
  Transmission Date: 20141212
  Serious: No
  Sender: FDA-Public Use
  Company Number: 163-POMAL-14020408

PATIENT
  Age: 77 Year
  Sex: Female

DRUGS (14)
  1. POMALYST (POMALIDOMIDE) (4 MILLIGRAM, CAPSULES) [Suspect]
     Indication: PLASMA CELL MYELOMA
     Dosage: 21 IN 21 D
     Route: 048
     Dates: start: 201307
  2. ASA (ACETYLSALICYLIC ACID) [Concomitant]
  3. MULTIVITAMINS (MULTIVITAMINS) [Concomitant]
  4. ALLOPURINOL (ALLOPURINOL) [Concomitant]
  5. CHLORHEXIDINE GLUCONATE (CHLORHEXIDINE GLUCONATE) [Concomitant]
  6. DEXAMETHASONE (DEXAMETHASONE) [Concomitant]
  7. KLOR CON (POTASSIUM CHLORIDE) [Concomitant]
  8. LOSARTAN (LOSARTAN) [Concomitant]
  9. VALACYCLOVIR (VALACYCLOVIR HYDROCHLORIDE) [Concomitant]
  10. DORZOLAMIDE [Concomitant]
  11. PRAZOSIN [Concomitant]
  12. LUMIGAN (BIMATOPROST) [Concomitant]
  13. ECOTRIN (ACETYLSALICYLIC ACID) [Concomitant]
  14. DORZOLAMIDE/TIMOLOL (COSOPT) [Concomitant]

REACTIONS (7)
  - Mouth swelling [None]
  - Peripheral coldness [None]
  - Night sweats [None]
  - Fatigue [None]
  - Tooth infection [None]
  - Nasopharyngitis [None]
  - Rhinorrhoea [None]
